FAERS Safety Report 20142136 (Version 1)
Quarter: 2021Q4

REPORT INFORMATION
  Report Type: Spontaneous
  Country: FR (occurrence: FR)
  Receive Date: 20211202
  Receipt Date: 20211202
  Transmission Date: 20220303
  Serious: Yes (Other)
  Sender: FDA-Public Use
  Company Number: FR-ORGANON-1610FRA011260

PATIENT
  Age: 24 Year
  Sex: Female
  Weight: 120 kg

DRUGS (2)
  1. NEXPLANON [Suspect]
     Active Substance: ETONOGESTREL
     Dosage: 1 DOSAGE FORM
     Route: 059
     Dates: start: 20141124
  2. NEXPLANON [Suspect]
     Active Substance: ETONOGESTREL
     Dosage: IMPLANT 2, IN THE RIGHT ARM (LEFT-HANDED PATIENT)
     Route: 059
     Dates: start: 2019

REACTIONS (4)
  - Pregnancy with implant contraceptive [Recovered/Resolved]
  - Unintended pregnancy [Recovered/Resolved]
  - Heavy menstrual bleeding [Unknown]
  - Inappropriate schedule of product administration [Unknown]

NARRATIVE: CASE EVENT DATE: 20141124
